FAERS Safety Report 6181867-6 (Version None)
Quarter: 2009Q2

REPORT INFORMATION
  Report Type: 
  Country: None (occurrence: None)
  Receive Date: 20090504
  Receipt Date: 20090429
  Transmission Date: 20091009
  Serious: Yes (Hospitalization, Other)
  Sender: FDA-Public Use
  Company Number: 09GB001025

PATIENT
  Age: 84 Year
  Sex: Female

DRUGS (6)
  1. RANITIDINE HYDROCHLORIDE [Suspect]
     Indication: DYSPEPSIA
     Dosage: 150 MG, ORAL
     Route: 048
  2. ASPIRIN [Concomitant]
  3. CO-AMILOFRUSE (AMILORIDE HYDROCHLORIDE, FUROSEMIDE) [Concomitant]
  4. GLUCOSAMINE (GLUCOSAMINE SULFATE) [Concomitant]
  5. NIFEDIPINE [Concomitant]
  6. OMEPRAZOLE [Concomitant]

REACTIONS (1)
  - HALLUCINATIONS, MIXED [None]
